FAERS Safety Report 5519368-8 (Version None)
Quarter: 2007Q4

REPORT INFORMATION
  Report Type: 
  Country: None (occurrence: None)
  Receive Date: 20071116
  Receipt Date: 20070418
  Transmission Date: 20080405
  Serious: No
  Sender: FDA-Public Use
  Company Number: A0647834A

PATIENT
  Age: 84 Year
  Sex: Female

DRUGS (3)
  1. COREG CR [Suspect]
     Indication: DRUG USE FOR UNKNOWN INDICATION
     Dosage: 80MG SINGLE DOSE
     Route: 048
     Dates: start: 20070418, end: 20070418
  2. AMIODARONE [Concomitant]
  3. DEMADEX [Concomitant]

REACTIONS (3)
  - DIZZINESS [None]
  - MUSCLE SPASMS [None]
  - NAUSEA [None]
